FAERS Safety Report 20891675 (Version 1)
Quarter: 2022Q2

REPORT INFORMATION
  Report Type: Spontaneous
  Country: IT (occurrence: IT)
  Receive Date: 20220530
  Receipt Date: 20220530
  Transmission Date: 20220720
  Serious: Yes (Disabling, Other)
  Sender: FDA-Public Use
  Company Number: IT-ORGANON-O2204ITA002097

PATIENT
  Sex: Male

DRUGS (2)
  1. REMERON [Suspect]
     Active Substance: MIRTAZAPINE
     Dosage: 7.5 MILLIGRAM
     Route: 048
  2. REMERON [Suspect]
     Active Substance: MIRTAZAPINE
     Dosage: 3 MILLIGRAM
     Route: 048

REACTIONS (9)
  - Hypervigilance [Recovering/Resolving]
  - Gastric hypomotility [Recovering/Resolving]
  - Depression [Recovering/Resolving]
  - Withdrawal syndrome [Not Recovered/Not Resolved]
  - Hallucination [Recovered/Resolved]
  - Restless legs syndrome [Recovering/Resolving]
  - Nightmare [Recovering/Resolving]
  - Anxiety [Recovering/Resolving]
  - Product availability issue [Unknown]
